FAERS Safety Report 5106887-1 (Version None)
Quarter: 2006Q3

REPORT INFORMATION
  Report Type: 
  Country: None (occurrence: None)
  Receive Date: 20060913
  Receipt Date: 20060906
  Transmission Date: 20061208
  Serious: Yes (Death)
  Sender: FDA-Public Use
  Company Number: GBWYE746621AUG06

PATIENT
  Age: 44 Year
  Sex: Male

DRUGS (1)
  1. EFFEXOR [Suspect]
     Indication: DEPRESSION
     Dosage: ORAL
     Route: 048

REACTIONS (3)
  - ARTERIOSCLEROSIS CORONARY ARTERY [None]
  - MYOCARDIAL ISCHAEMIA [None]
  - SUDDEN CARDIAC DEATH [None]
